FAERS Safety Report 8588386-8 (Version None)
Quarter: 2012Q3

REPORT INFORMATION
  Report Type: 
  Country: None (occurrence: None)
  Receive Date: 20120813
  Receipt Date: 20120802
  Transmission Date: 20120928
  Serious: Yes (Life-Threatening, Hospitalization, Other)
  Sender: FDA-Public Use
  Company Number: SG-MPIJNJ-2012-05382

PATIENT

DRUGS (11)
  1. VELCADE [Suspect]
     Indication: DIFFUSE LARGE B-CELL LYMPHOMA
     Dosage: UNK MG/M2, UNK
     Route: 065
     Dates: start: 20120621, end: 20120726
  2. IFOSFAMIDE [Suspect]
     Indication: DIFFUSE LARGE B-CELL LYMPHOMA
     Dosage: UNK
     Route: 065
     Dates: start: 20120621, end: 20120726
  3. ETOPOSIDE [Suspect]
     Indication: DIFFUSE LARGE B-CELL LYMPHOMA
     Dosage: UNK
     Route: 065
     Dates: start: 20120621, end: 20120726
  4. METHOTREXATE SODIUM [Concomitant]
     Indication: PROPHYLAXIS
     Route: 037
  5. RITUXIMAB [Suspect]
     Indication: DIFFUSE LARGE B-CELL LYMPHOMA
     Dosage: UNK
     Route: 065
     Dates: start: 20120621, end: 20120726
  6. CARBOPLATIN [Suspect]
     Indication: DIFFUSE LARGE B-CELL LYMPHOMA
     Dosage: UNK
     Route: 065
     Dates: start: 20120621, end: 20120726
  7. ACYCLOVIR [Concomitant]
     Dosage: 400 MG, BID
  8. PENTAMIDINE [Concomitant]
     Indication: PNEUMOCYSTIS JIROVECI PNEUMONIA
  9. VELCADE [Suspect]
     Dosage: UNK
     Route: 037
     Dates: start: 20120731
  10. OMEPRAZOLE [Concomitant]
     Dosage: 20 MG, UNK
  11. LAMIVUDINE [Concomitant]
     Dosage: 100 MG, UNK

REACTIONS (5)
  - MYALGIA [None]
  - DEMYELINATION [None]
  - RHABDOMYOLYSIS [None]
  - INCORRECT ROUTE OF DRUG ADMINISTRATION [None]
  - TUMOUR LYSIS SYNDROME [None]
